FAERS Safety Report 6094960-3 (Version None)
Quarter: 2009Q1

REPORT INFORMATION
  Report Type: 
  Country: None (occurrence: None)
  Receive Date: 20090227
  Receipt Date: 20090217
  Transmission Date: 20090719
  Serious: Yes (Other)
  Sender: FDA-Public Use
  Company Number: MY-PFIZER INC-2009172735

PATIENT

DRUGS (1)
  1. CELEBREX [Suspect]
     Indication: CHEST PAIN
     Dosage: 400 MG, 1X/DAY
     Route: 048
     Dates: start: 20081001

REACTIONS (1)
  - ARRHYTHMIA [None]
